FAERS Safety Report 4821765-0 (Version None)
Quarter: 2005Q4

REPORT INFORMATION
  Report Type: 
  Country: None (occurrence: None)
  Receive Date: 20051104
  Receipt Date: 20051104
  Transmission Date: 20060501
  Serious: Yes (Other)
  Sender: FDA-Public Use
  Company Number: None

PATIENT
  Sex: Female

DRUGS (2)
  1. TNKASE [Suspect]
     Dosage: 10 ML IN 100 ML
  2. ZOSYN [Suspect]
     Dosage: 3.375 GM Q6HRS IV
     Route: 042

REACTIONS (1)
  - DRUG HYPERSENSITIVITY [None]
